FAERS Safety Report 8312589-0 (Version None)
Quarter: 2012Q2

REPORT INFORMATION
  Report Type: 
  Country: None (occurrence: None)
  Receive Date: 20120424
  Receipt Date: 20120424
  Transmission Date: 20120825
  Serious: Yes (Other)
  Sender: FDA-Public Use
  Company Number: None

PATIENT
  Age: 56 Year
  Sex: Female
  Weight: 79.1 kg

DRUGS (2)
  1. ATORVASTATIN CALCIUM [Suspect]
     Indication: HYPERLIPIDAEMIA
     Dosage: ATORVASTATIN 40 MG DAILY BY MOUTH
     Route: 048
     Dates: start: 20120301
  2. ATORVASTATIN CALCIUM [Suspect]

REACTIONS (6)
  - AMNESIA [None]
  - NAUSEA [None]
  - PRODUCT FORMULATION ISSUE [None]
  - PALPITATIONS [None]
  - PRODUCT SUBSTITUTION ISSUE [None]
  - ATRIAL FIBRILLATION [None]
